FAERS Safety Report 6732726-9 (Version None)
Quarter: 2010Q2

REPORT INFORMATION
  Report Type: 
  Country: None (occurrence: None)
  Receive Date: 20100519
  Receipt Date: 20100422
  Transmission Date: 20101027
  Serious: Yes (Hospitalization, Other)
  Sender: FDA-Public Use
  Company Number: US-ASTRAZENECA-2010SE19308

PATIENT
  Age: 66 Year
  Sex: Male
  Weight: 99.5 kg

DRUGS (17)
  1. OMEPRAZOLE [Suspect]
     Route: 048
  2. LISINOPRIL [Suspect]
     Route: 048
  3. DEXAMETHASONE [Suspect]
     Indication: PROSTATE CANCER
     Dates: start: 20100204
  4. ASPIRIN [Suspect]
  5. ATRASENTAN OR PLACEBO [Suspect]
     Indication: PROSTATE CANCER
     Dosage: EVERY CYCLE
     Route: 048
     Dates: start: 20100204, end: 20100215
  6. PLAVIX [Suspect]
     Route: 048
  7. DOCETAXEL [Suspect]
     Indication: PROSTATE CANCER
     Dosage: 160 MG EVERY CYCLE
     Route: 041
     Dates: start: 20100204, end: 20100204
  8. CARVEDILOL [Suspect]
  9. ALL OTHER THERAPEUTIC PRODUCTS [Suspect]
  10. NAPROXEN [Suspect]
  11. PREDNISONE [Concomitant]
     Route: 065
     Dates: start: 20100204
  12. ACETAMINOPHEN W/ PROPOXYPHENE HCL [Concomitant]
     Route: 065
  13. MORNIFLUMATE [Concomitant]
     Route: 065
  14. LEUPRORELIN [Concomitant]
     Route: 065
  15. ACETATE [Concomitant]
     Route: 065
  16. FLOMAX [Concomitant]
     Route: 065
  17. FOLAMIN [Concomitant]
     Route: 065

REACTIONS (3)
  - HYPOGLYCAEMIA [None]
  - HYPOTENSION [None]
  - LARGE INTESTINAL HAEMORRHAGE [None]
